FAERS Safety Report 5549674-2 (Version None)
Quarter: 2007Q4

REPORT INFORMATION
  Report Type: 
  Country: None (occurrence: None)
  Receive Date: 20071128
  Receipt Date: 20070920
  Transmission Date: 20080405
  Serious: Yes (Other)
  Sender: FDA-Public Use
  Company Number: 2007080319

PATIENT

DRUGS (1)
  1. EXUBERA [Suspect]
     Dosage: (2 MG)

REACTIONS (1)
  - DYSPNOEA [None]
